FAERS Safety Report 18984609 (Version 1)
Quarter: 2021Q1

REPORT INFORMATION
  Report Type: Spontaneous
  Country: IL (occurrence: IL)
  Receive Date: 20210309
  Receipt Date: 20210309
  Transmission Date: 20210420
  Serious: Yes (Other)
  Sender: FDA-Public Use
  Company Number: IL-ROCHE-2778982

PATIENT
  Age: 55 Year
  Sex: Female

DRUGS (1)
  1. XELODA [Suspect]
     Active Substance: CAPECITABINE
     Indication: BREAST CANCER
     Route: 048

REACTIONS (6)
  - Pain in extremity [Unknown]
  - Nausea [Unknown]
  - Burning sensation [Unknown]
  - Skin exfoliation [Unknown]
  - Abdominal rigidity [Unknown]
  - Metastases to bone [Unknown]
